FAERS Safety Report 15840274 (Version 2)
Quarter: 2019Q1

REPORT INFORMATION
  Report Type: Spontaneous
  Country: NL (occurrence: NL)
  Receive Date: 20190117
  Receipt Date: 20190128
  Transmission Date: 20190417
  Serious: Yes (Hospitalization, Other)
  Sender: FDA-Public Use
  Company Number: NL-009507513-1901NLD004139

PATIENT
  Age: 23 Year
  Sex: Female

DRUGS (1)
  1. IMPLANON [Suspect]
     Active Substance: ETONOGESTREL
     Dosage: 1 IMPLANT
     Route: 059
     Dates: start: 20181204

REACTIONS (10)
  - Implant site infection [Recovered/Resolved]
  - Pyrexia [Unknown]
  - Peripheral swelling [Recovered/Resolved]
  - Device related infection [Recovered/Resolved]
  - Implant site nodule [Unknown]
  - Feeling hot [Recovered/Resolved]
  - Erythema [Recovered/Resolved]
  - Blister [Unknown]
  - Complication associated with device [Recovered/Resolved]
  - Device deployment issue [Unknown]

NARRATIVE: CASE EVENT DATE: 201812
